FAERS Safety Report 18881282 (Version 1)
Quarter: 2021Q1

REPORT INFORMATION
  Report Type: Spontaneous
  Country: US (occurrence: US)
  Receive Date: 20210212
  Receipt Date: 20210212
  Transmission Date: 20210420
  Serious: No
  Sender: FDA-Public Use
  Company Number: US-SA-2021SA038517

PATIENT
  Age: 34 Year
  Sex: Female

DRUGS (3)
  1. AUBAGIO [Suspect]
     Active Substance: TERIFLUNOMIDE
     Indication: MULTIPLE SCLEROSIS
     Dosage: 14 MG, QD
     Route: 048
     Dates: start: 202004
  2. GLATOPA [Concomitant]
     Active Substance: GLATIRAMER ACETATE
  3. COPAXONE [Concomitant]
     Active Substance: GLATIRAMER ACETATE

REACTIONS (8)
  - Gastric disorder [Recovered/Resolved]
  - Product dose omission issue [Unknown]
  - Back disorder [Unknown]
  - Condition aggravated [Unknown]
  - Diarrhoea [Unknown]
  - Burning sensation [Unknown]
  - Alopecia [Recovering/Resolving]
  - Paraesthesia [Unknown]

NARRATIVE: CASE EVENT DATE: 2020
